FAERS Safety Report 8131489-2 (Version None)
Quarter: 2012Q1

REPORT INFORMATION
  Report Type: 
  Country: None (occurrence: None)
  Receive Date: 20120213
  Receipt Date: 20120202
  Transmission Date: 20120608
  Serious: Yes (Other)
  Sender: FDA-Public Use
  Company Number: US-JNJFOC-20120202414

PATIENT
  Age: 83 Year
  Sex: Female
  Weight: 63.05 kg

DRUGS (4)
  1. LOTREL [Concomitant]
     Indication: BLOOD PRESSURE
  2. IRON [Concomitant]
  3. PROTONIX [Concomitant]
  4. XARELTO [Suspect]
     Indication: HIP SURGERY
     Route: 065
     Dates: start: 20120101

REACTIONS (1)
  - HIP SURGERY [None]
